FAERS Safety Report 9402967 (Version 1)
Quarter: 2013Q3

REPORT INFORMATION
  Report Type: Spontaneous
  Country: US (occurrence: None)
  Receive Date: 20130715
  Receipt Date: 20130715
  Transmission Date: 20140515
  Serious: No
  Sender: FDA-Public Use
  Company Number: None

PATIENT
  Age: 40 Year
  Sex: Female
  Weight: 90.72 kg

DRUGS (4)
  1. DELZICOL [Suspect]
     Indication: COLITIS ULCERATIVE
     Dosage: 400MG 2 PILLS TWICE DAILY BY MOUTH
     Route: 048
     Dates: start: 20130705
  2. SYNTHROID [Concomitant]
  3. SERTRALINE [Concomitant]
  4. GNC MULTIVITIMIN FOR WOMEN [Concomitant]

REACTIONS (2)
  - Dysphagia [None]
  - Sensation of foreign body [None]
